FAERS Safety Report 4648582-9 (Version None)
Quarter: 2005Q2

REPORT INFORMATION
  Report Type: 
  Country: None (occurrence: None)
  Receive Date: 20050429
  Receipt Date: 20050418
  Transmission Date: 20051028
  Serious: Yes (Hospitalization)
  Sender: FDA-Public Use
  Company Number: FR-BRISTOL-MYERS SQUIBB COMPANY-12937561

PATIENT
  Age: 90 Year
  Sex: Female

DRUGS (10)
  1. BRISTOPEN [Suspect]
     Indication: LOCALISED INFECTION
     Dates: start: 20041204, end: 20041212
  2. DAFALGAN [Suspect]
  3. HEXAMIDINE [Suspect]
  4. FUCIDINE CAP [Suspect]
  5. APROVEL [Concomitant]
  6. DAFLON [Concomitant]
  7. ISOPTIN [Concomitant]
  8. DEROXAT [Concomitant]
  9. NITROGLYCERIN [Concomitant]
  10. TANAKAN [Concomitant]

REACTIONS (2)
  - DERMATITIS BULLOUS [None]
  - HENOCH-SCHONLEIN PURPURA [None]
